FAERS Safety Report 10393802 (Version 1)
Quarter: 2014Q3

REPORT INFORMATION
  Report Type: Spontaneous
  Country: CA (occurrence: CA)
  Receive Date: 20140819
  Receipt Date: 20140819
  Transmission Date: 20150326
  Serious: Yes (Other)
  Sender: FDA-Public Use
  Company Number: CA-BAYER-2014-119267

PATIENT
  Age: 52 Year
  Sex: Male

DRUGS (11)
  1. CYCLOBENZAPRINE [Concomitant]
     Active Substance: CYCLOBENZAPRINE
  2. LORAZEPAM. [Concomitant]
     Active Substance: LORAZEPAM
  3. STIVARGA [Suspect]
     Active Substance: REGORAFENIB
     Dosage: 160 MG, CYCLICAL
     Route: 048
  4. APO-INDAPAMIDE [Concomitant]
  5. ACEBUTOLOL [Concomitant]
     Active Substance: ACEBUTOLOL
  6. RATIO-EMTEC [Concomitant]
  7. AMLODIPINE [Concomitant]
     Active Substance: AMLODIPINE BESYLATE
  8. FERROUS SULFATE [Concomitant]
     Active Substance: FERROUS SULFATE\FERROUS SULFATE, DRIED
  9. ACETAMINOPHEN. [Concomitant]
     Active Substance: ACETAMINOPHEN
  10. METFORMIN [Concomitant]
     Active Substance: METFORMIN HYDROCHLORIDE
  11. LOVENOX [Concomitant]
     Active Substance: ENOXAPARIN SODIUM
     Route: 058

REACTIONS (5)
  - Dyspepsia [Recovered/Resolved]
  - Muscular weakness [Recovered/Resolved]
  - Parkinsonian gait [Recovered/Resolved]
  - Apathy [Recovered/Resolved]
  - Hypoaesthesia [Recovered/Resolved]
